FAERS Safety Report 10606585 (Version 1)
Quarter: 2014Q4

REPORT INFORMATION
  Report Type: Spontaneous
  Country: US (occurrence: None)
  Receive Date: 20141124
  Receipt Date: 20141124
  Transmission Date: 20150529
  Serious: Yes (Hospitalization)
  Sender: FDA-Public Use
  Company Number: None

PATIENT
  Age: 56 Year
  Sex: Male
  Weight: 83.5 kg

DRUGS (3)
  1. VALTREX [Suspect]
     Active Substance: VALACYCLOVIR HYDROCHLORIDE
     Indication: HERPES ZOSTER
     Dosage: RECENT
     Route: 048
  2. GABAPENTIN. [Suspect]
     Active Substance: GABAPENTIN
     Route: 048
  3. PERCOCET [Suspect]
     Active Substance: ACETAMINOPHEN\OXYCODONE HYDROCHLORIDE
     Indication: PAIN
     Dosage: 5/325 MG 1-2 TABS?Q6HR PRN?PO?RECENT
     Route: 048

REACTIONS (10)
  - Asthenia [None]
  - Delirium [None]
  - Hallucination [None]
  - Encephalopathy [None]
  - Fatigue [None]
  - Malnutrition [None]
  - Impaired healing [None]
  - Mental status changes [None]
  - Herpes zoster [None]
  - Myoclonus [None]

NARRATIVE: CASE EVENT DATE: 20140526
